FAERS Safety Report 7285744-9 (Version None)
Quarter: 2011Q1

REPORT INFORMATION
  Report Type: 
  Country: None (occurrence: None)
  Receive Date: 20110124
  Receipt Date: 20110113
  Transmission Date: 20110831
  Serious: Yes (Hospitalization)
  Sender: FDA-Public Use
  Company Number: 2010027254

PATIENT
  Sex: Female

DRUGS (2)
  1. PRIVIGEN [Suspect]
     Indication: TRANSPLANT REJECTION
     Dosage: (10 G QD INTRAVENOUS (NOT OTHERIWISE SPECIFIED)) ; (70 G QD INTRAVENOUS (NOT OTHERWISE SPECIFIED))
     Route: 042
     Dates: start: 20101028, end: 20101028
  2. PRIVIGEN [Suspect]
     Indication: TRANSPLANT REJECTION
     Dosage: (10 G QD INTRAVENOUS (NOT OTHERIWISE SPECIFIED)) ; (70 G QD INTRAVENOUS (NOT OTHERWISE SPECIFIED))
     Route: 042
     Dates: start: 20101027, end: 20101027

REACTIONS (1)
  - THROMBOTIC MICROANGIOPATHY [None]
